FAERS Safety Report 4901214-4 (Version None)
Quarter: 2006Q2

REPORT INFORMATION
  Report Type: 
  Country: None (occurrence: None)
  Receive Date: 20060202
  Receipt Date: 20060120
  Transmission Date: 20061013
  Serious: Yes (Other)
  Sender: FDA-Public Use
  Company Number: 2006011763

PATIENT
  Age: 11 Year
  Sex: Male
  Weight: 49.8957 kg

DRUGS (5)
  1. ZITHROMAX [Suspect]
     Indication: EAR INFECTION
     Dosage: 2 TABLETS (DAILY INTERVAL: EVERY DAY), ORAL
     Route: 048
     Dates: start: 20050101, end: 20050101
  2. ZITHROMAX [Suspect]
     Indication: PHARYNGOLARYNGEAL PAIN
     Dosage: 2 TABLETS (DAILY INTERVAL: EVERY DAY), ORAL
     Route: 048
     Dates: start: 20050101, end: 20050101
  3. ZITHROMAX [Suspect]
     Indication: SINUSITIS
     Dosage: 2 TABLETS (DAILY INTERVAL: EVERY DAY), ORAL
     Route: 048
     Dates: start: 20050101, end: 20050101
  4. PREDNISONE TAB [Suspect]
     Indication: ILL-DEFINED DISORDER
  5. CHILDREN'S SUDAFED (PSEUDOEPHEDRINE) [Concomitant]

REACTIONS (4)
  - DRUG HYPERSENSITIVITY [None]
  - DYSPNOEA [None]
  - STARVATION [None]
  - WHEEZING [None]
